FAERS Safety Report 9472800 (Version 1)
Quarter: 2013Q3

REPORT INFORMATION
  Report Type: Report from Study
  Country: DE (occurrence: DE)
  Receive Date: 20130823
  Receipt Date: 20130823
  Transmission Date: 20140515
  Serious: Yes (Other)
  Sender: FDA-Public Use
  Company Number: PHHY2013DE090597

PATIENT
  Sex: Female
  Weight: 52 kg

DRUGS (14)
  1. AMN107 [Suspect]
     Indication: CHRONIC MYELOID LEUKAEMIA
     Dosage: 300 MG, DAILY
     Route: 048
     Dates: start: 20120528
  2. METHYLPHENIDATE HYDROCHLORIDE SANDOZ [Suspect]
     Indication: DEPRESSION
     Dosage: 40 MG, DAILY
     Route: 048
     Dates: start: 2012, end: 2012
  3. TRAZODONE [Suspect]
     Dosage: 250 MG, DAILY
     Route: 048
     Dates: start: 2007
  4. TRAZODONE [Suspect]
     Dates: start: 201111
  5. TORASEMIDE [Suspect]
     Indication: PERICARDIAL EFFUSION
     Dosage: 10 MG, DAILY
     Route: 048
     Dates: start: 201204, end: 201206
  6. TORASEMIDE [Suspect]
     Indication: PLEURAL EFFUSION
  7. SPIRONOLACTONE SANDOZ [Suspect]
     Indication: PERICARDIAL EFFUSION
     Dosage: 50 MG, DAILY
     Route: 048
     Dates: start: 201204, end: 201206
  8. SPIRONOLACTONE SANDOZ [Suspect]
     Indication: PLEURAL EFFUSION
  9. OMEPRAZOLE [Suspect]
     Indication: DYSPEPSIA
     Dosage: 1 DF, DAILY
     Dates: start: 201206
  10. SPRYCEL//DASATINIB [Suspect]
     Indication: CHRONIC MYELOID LEUKAEMIA
     Dosage: 100 MG, DAILY
     Route: 048
     Dates: start: 200810, end: 201204
  11. MARCUMAR [Suspect]
     Indication: PULMONARY EMBOLISM
     Route: 048
     Dates: start: 2002, end: 201212
  12. INNOHEP [Suspect]
     Indication: DEEP VEIN THROMBOSIS
     Dosage: 10000 IU, DAILY
     Route: 058
     Dates: start: 201212
  13. LAMOTRIGINE [Concomitant]
     Indication: DEPRESSION
     Dosage: 100 MG, DAILY
     Route: 048
     Dates: start: 2012, end: 2012
  14. MCP ^HEXAL^ [Concomitant]
     Indication: NAUSEA
     Dosage: 40 DRP, DAILY
     Route: 048
     Dates: start: 200811

REACTIONS (3)
  - Hepatitis [Unknown]
  - Gamma-glutamyltransferase increased [Not Recovered/Not Resolved]
  - Alanine aminotransferase increased [Unknown]
